FAERS Safety Report 9518722 (Version 3)
Quarter: 2020Q3

REPORT INFORMATION
  Report Type: Report from Study
  Country: JP (occurrence: JP)
  Receive Date: 20130912
  Receipt Date: 20140710
  Transmission Date: 20201104
  Serious: Yes (Hospitalization)
  Sender: FDA-Public Use
  Company Number: JP-ASTELLAS-2013US009488

PATIENT
  Age: 63 Year
  Sex: Male

DRUGS (13)
  1. ERLOTINIB [Suspect]
     Active Substance: ERLOTINIB
     Indication: NON-SMALL CELL LUNG CANCER
     Route: 048
     Dates: start: 20130726, end: 20130824
  2. DIART [Suspect]
     Active Substance: AZOSEMIDE
     Indication: OEDEMA PERIPHERAL
     Route: 048
     Dates: start: 20130726, end: 20130823
  3. MICAMLO [Concomitant]
     Active Substance: AMLODIPINE BESYLATE\TELMISARTAN
     Indication: HYPERTENSION
     Route: 048
  4. ERLOTINIB [Suspect]
     Active Substance: ERLOTINIB
     Route: 048
     Dates: start: 20130905
  5. ALDACTONE [Suspect]
     Active Substance: SPIRONOLACTONE
     Indication: OEDEMA PERIPHERAL
     Route: 048
     Dates: start: 20130814, end: 20130823
  6. DERMOVATE [Concomitant]
     Active Substance: CLOBETASOL
     Indication: DERMATITIS ACNEIFORM
     Dosage: TIMELY PROPER QUANTITY
     Route: 061
     Dates: start: 20130606
  7. PROPETO [Concomitant]
     Indication: DRY SKIN
     Dosage: TIMELY PROPER QUANTITY
     Route: 061
     Dates: start: 20130607, end: 20130712
  8. ERLOTINIB [Suspect]
     Active Substance: ERLOTINIB
     Route: 048
     Dates: start: 20130530, end: 20130713
  9. ONARTUZUMAB. [Suspect]
     Active Substance: ONARTUZUMAB
     Indication: NON-SMALL CELL LUNG CANCER
     Dosage: 1482 MG/KG, EVERY 3 WEEKS
     Route: 042
     Dates: start: 20130530, end: 20130814
  10. DERMOVATE [Concomitant]
     Active Substance: CLOBETASOL
     Indication: DERMATITIS ACNEIFORM
     Dosage: TIMELY PROPER QUANTITY
     Route: 061
  11. PROPADERM [Concomitant]
     Active Substance: BECLOMETHASONE DIPROPIONATE
     Indication: DERMATITIS ACNEIFORM
     Dosage: TIMELY PROPER QUANTITY
     Route: 061
     Dates: start: 20130614
  12. MINOMYCIN [Concomitant]
     Active Substance: MINOCYCLINE HYDROCHLORIDE
     Indication: DERMATITIS ACNEIFORM
     Route: 048
     Dates: start: 20130712
  13. GENTACIN [Concomitant]
     Active Substance: GENTAMICIN SULFATE
     Indication: RASH PUSTULAR
     Dosage: TIMELY PROPER QUANTITY
     Route: 061
     Dates: start: 20130814

REACTIONS (3)
  - Embolism [Recovered/Resolved]
  - Dermatitis acneiform [Recovering/Resolving]
  - Oedema peripheral [Not Recovered/Not Resolved]

NARRATIVE: CASE EVENT DATE: 20130626
